FAERS Safety Report 23949960 (Version 1)
Quarter: 2024Q2

REPORT INFORMATION
  Report Type: Spontaneous
  Country: US (occurrence: None)
  Receive Date: 20240606
  Receipt Date: 20240606
  Transmission Date: 20240716
  Serious: Yes (Hospitalization)
  Sender: FDA-Public Use
  Company Number: None

PATIENT
  Age: 83 Year
  Sex: Male

DRUGS (2)
  1. STIVARGA [Suspect]
     Active Substance: REGORAFENIB\REGORAFENIB MONOHYDRATE
     Dosage: 80 MG 21 DAYS ON, 3 OFF ORAL?
     Route: 048
  2. GABAPENTIN [Suspect]
     Active Substance: GABAPENTIN

REACTIONS (7)
  - Dementia [None]
  - Tremor [None]
  - Personality change [None]
  - Hallucination [None]
  - Fall [None]
  - Delusion [None]
  - Therapy cessation [None]
